FAERS Safety Report 7470312-6 (Version None)
Quarter: 2011Q2

REPORT INFORMATION
  Report Type: 
  Country: None (occurrence: None)
  Receive Date: 20110510
  Receipt Date: 20081027
  Transmission Date: 20111010
  Serious: Yes (Hospitalization, Other)
  Sender: FDA-Public Use
  Company Number: US-BAYER-200836745NA

PATIENT
  Age: 51 Year
  Sex: Female
  Weight: 64 kg

DRUGS (22)
  1. TRASYLOL [Suspect]
     Indication: BLOOD STEM CELL HARVEST
  2. CEFUROXIME [Concomitant]
     Dosage: UNK
     Route: 042
     Dates: start: 20061010
  3. TRASYLOL [Suspect]
     Indication: THROMBOSIS
  4. HEPARIN [Concomitant]
     Dosage: UNK
     Route: 042
     Dates: start: 20060930
  5. TRASYLOL [Suspect]
     Indication: MITRAL VALVE REPAIR
     Dosage: 200 ML FOLLOWED BY 50 ML/HR
     Route: 042
     Dates: start: 20060808
  6. SPIRONOLACTONE [Concomitant]
     Dosage: 12.5 MG, QD
     Route: 048
     Dates: start: 20040821
  7. CAPTOPRIL [Concomitant]
     Dosage: 6.25 MG, TID
     Route: 048
     Dates: start: 20060824
  8. ALDACTONE [Concomitant]
     Dosage: UNK
     Route: 048
     Dates: start: 20061001
  9. DIURIL [Concomitant]
     Dosage: UNK
     Route: 042
     Dates: start: 20060929
  10. CIPROFLOXACIN [Concomitant]
     Dosage: 200 MG, BID
     Route: 042
     Dates: start: 20061006, end: 20061008
  11. FUROSEMIDE [Concomitant]
     Dosage: 20 MG, QD
     Route: 048
     Dates: start: 20040821
  12. DIOVAN [Concomitant]
     Dosage: 80 MG, QD
     Route: 048
  13. SYNTHROID [Concomitant]
     Dosage: 0.125 MG, QD
     Route: 048
     Dates: start: 19930101
  14. TRASYLOL [Suspect]
     Indication: HEART TRANSPLANT
     Dosage: 400ML FOLLOWED BY 50ML/HR
     Route: 042
     Dates: start: 20061010, end: 20061010
  15. INSULIN HUMAN [Concomitant]
     Route: 042
  16. PROTAMINE SULFATE [Concomitant]
     Dosage: UNK
     Route: 042
     Dates: start: 20061010, end: 20061010
  17. LISINOPRIL [Concomitant]
     Dosage: UNK
     Route: 048
     Dates: start: 20040821
  18. VASOTEC [ENALAPRILAT] [Concomitant]
     Route: 048
  19. WARFARIN [Concomitant]
     Dosage: 1 MG, QD
     Route: 048
  20. COREG [Concomitant]
     Dosage: 6.25 MG, QD
     Route: 048
     Dates: start: 20040821, end: 20060914
  21. RED BLOOD CELLS, CONCENTRATED [Concomitant]
     Dosage: 2 U, UNK
     Dates: start: 20061010
  22. PLATELETS [Concomitant]
     Dosage: 2 U, UNK
     Dates: start: 20061010

REACTIONS (11)
  - STRESS [None]
  - EMOTIONAL DISTRESS [None]
  - ANXIETY [None]
  - FEAR [None]
  - RENAL FAILURE [None]
  - PAIN [None]
  - ANHEDONIA [None]
  - INJURY [None]
  - UNEVALUABLE EVENT [None]
  - RENAL INJURY [None]
  - RENAL IMPAIRMENT [None]
